FAERS Safety Report 11993322 (Version 1)
Quarter: 2016Q1

REPORT INFORMATION
  Report Type: Spontaneous
  Country: DK (occurrence: DK)
  Receive Date: 20160203
  Receipt Date: 20160203
  Transmission Date: 20160526
  Serious: Yes (Hospitalization)
  Sender: FDA-Public Use
  Company Number: PHHY2016DK013098

PATIENT
  Age: 89 Year
  Sex: Male
  Weight: 57 kg

DRUGS (7)
  1. LOVASTATIN STADA [Concomitant]
     Indication: HYPERCHOLESTEROLAEMIA
     Dosage: UNK
     Route: 065
     Dates: start: 20140909
  2. MAGNESIA ^DAK^ [Concomitant]
     Indication: CONSTIPATION
     Dosage: UNK
     Route: 065
     Dates: start: 20151002
  3. TEGRETOL [Suspect]
     Active Substance: CARBAMAZEPINE
     Indication: TRIGEMINAL NEURALGIA
     Dosage: 200 MG, BID
     Route: 048
     Dates: start: 20160115, end: 20160122
  4. AMLODIPIN ACTAVIS//AMLODIPINE MESILATE [Concomitant]
     Indication: HYPERTENSION
     Route: 065
     Dates: start: 20140506
  5. GLUCOSAMIN PHARMA NORD [Concomitant]
     Indication: ARTHRITIS
     Dosage: UNK
     Route: 065
     Dates: start: 20150311
  6. HJERTEMAGNYL                       /00228701/ [Concomitant]
     Active Substance: ASPIRIN\MAGNESIUM OXIDE
     Indication: CARDIOVASCULAR EVENT PROPHYLAXIS
     Route: 065
     Dates: start: 20140325
  7. PINEX//PARACETAMOL [Concomitant]
     Indication: PAIN
     Route: 065
     Dates: start: 20160113

REACTIONS (2)
  - Fall [Not Recovered/Not Resolved]
  - Dizziness [Recovered/Resolved]

NARRATIVE: CASE EVENT DATE: 201601
